FAERS Safety Report 7229045-3 (Version None)
Quarter: 2011Q1

REPORT INFORMATION
  Report Type: 
  Country: None (occurrence: None)
  Receive Date: 20110117
  Receipt Date: 20110113
  Transmission Date: 20110831
  Serious: Yes (Life-Threatening, Other)
  Sender: FDA-Public Use
  Company Number: PHFR2010GB00529

PATIENT
  Sex: Male

DRUGS (5)
  1. CLOZARIL [Suspect]
     Indication: SCHIZOPHRENIA
     Dosage: UNK MG, UNK
     Route: 048
     Dates: start: 19990822
  2. IBUPROFEN [Concomitant]
     Indication: MUSCULOSKELETAL PAIN
     Dosage: PRN
     Route: 048
  3. LOPERAMIDE [Concomitant]
     Dosage: 4MG
     Route: 048
     Dates: start: 20100817
  4. GRANULOCYTE COLONY STIMULATING FACTOR [Concomitant]
  5. CLOZARIL [Suspect]
     Route: 048
     Dates: start: 20010701

REACTIONS (9)
  - NON-HODGKIN'S LYMPHOMA [None]
  - LOSS OF CONSCIOUSNESS [None]
  - CIRCULATORY COLLAPSE [None]
  - DIZZINESS [None]
  - MEAN CELL HAEMOGLOBIN DECREASED [None]
  - LYMPHOCYTE COUNT DECREASED [None]
  - MEAN CELL VOLUME DECREASED [None]
  - HAEMOGLOBIN DECREASED [None]
  - DIFFERENTIAL WHITE BLOOD CELL COUNT ABNORMAL [None]
